FAERS Safety Report 15766580 (Version 1)
Quarter: 2018Q4

REPORT INFORMATION
  Report Type: Spontaneous
  Country: US (occurrence: US)
  Receive Date: 20181227
  Receipt Date: 20181227
  Transmission Date: 20190205
  Serious: Yes (Other)
  Sender: FDA-Public Use
  Company Number: US-BIOGEN-2018BI00675056

PATIENT
  Sex: Female

DRUGS (1)
  1. AVONEX [Suspect]
     Active Substance: INTERFERON BETA-1A
     Indication: MULTIPLE SCLEROSIS
     Route: 065
     Dates: start: 20030821

REACTIONS (6)
  - Malaise [Unknown]
  - Multiple sclerosis [Unknown]
  - Pain [Recovered/Resolved]
  - Anaphylactic shock [Unknown]
  - Rash [Unknown]
  - Herpes zoster [Unknown]
